FAERS Safety Report 13797815 (Version 1)
Quarter: 2017Q3

REPORT INFORMATION
  Report Type: Spontaneous
  Country: CL (occurrence: CL)
  Receive Date: 20170727
  Receipt Date: 20170727
  Transmission Date: 20171127
  Serious: Yes (Hospitalization, Other)
  Sender: FDA-Public Use
  Company Number: CL-ALEMBIC PHARMACUETICALS LIMITED-2017SCAL000622

PATIENT

DRUGS (6)
  1. RISPERIDONE. [Suspect]
     Active Substance: RISPERIDONE
     Indication: MAJOR DEPRESSION
     Dosage: 200 MG, QD
  2. VENLAFAXINE HYDROCHLORIDE. [Suspect]
     Active Substance: VENLAFAXINE HYDROCHLORIDE
     Indication: MAJOR DEPRESSION
     Dosage: 225 MG, UNK
  3. MIRTAZAPINE. [Suspect]
     Active Substance: MIRTAZAPINE
     Indication: MAJOR DEPRESSION
     Dosage: 30 MG, UNK
  4. RISPERIDONE. [Suspect]
     Active Substance: RISPERIDONE
     Dosage: 3 MG, QD
  5. RISPERIDONE. [Suspect]
     Active Substance: RISPERIDONE
     Dosage: REDUCED DOSE
  6. QUETIAPINE FUMARATE. [Suspect]
     Active Substance: QUETIAPINE FUMARATE
     Indication: MAJOR DEPRESSION
     Dosage: 200 MG, UNK

REACTIONS (2)
  - Status epilepticus [Recovered/Resolved]
  - Catatonia [Recovered/Resolved]
